FAERS Safety Report 10653702 (Version 4)
Quarter: 2019Q3

REPORT INFORMATION
  Report Type: Spontaneous
  Country: US (occurrence: US)
  Receive Date: 20141216
  Receipt Date: 20190729
  Transmission Date: 20191004
  Serious: Yes (Hospitalization, Other)
  Sender: FDA-Public Use
  Company Number: US-PFIZER INC-2014338766

PATIENT
  Age: 78 Year
  Sex: Female
  Weight: 90.7 kg

DRUGS (1)
  1. TOVIAZ [Suspect]
     Active Substance: FESOTERODINE FUMARATE
     Indication: BLADDER DISORDER
     Dosage: 8 MG, 1X/DAY
     Route: 048
     Dates: start: 201401

REACTIONS (2)
  - Atrial fibrillation [Recovered/Resolved]
  - Cardiac disorder [Recovered/Resolved]

NARRATIVE: CASE EVENT DATE: 201401
